FAERS Safety Report 19697738 (Version 1)
Quarter: 2021Q3

REPORT INFORMATION
  Report Type: Report from Study
  Country: None (occurrence: US)
  Receive Date: 20210812
  Receipt Date: 20210812
  Transmission Date: 20211014
  Serious: Yes (Other)
  Sender: FDA-Public Use
  Company Number: US-ABBVIE-21K-163-4006354-00

PATIENT
  Age: 104 Year
  Sex: Female

DRUGS (1)
  1. VENCLEXTA [Suspect]
     Active Substance: VENETOCLAX
     Indication: FOLLICULAR LYMPHOMA
     Dosage: TAKE 3 TABLET(S) BY MOUTH EVERY DAY
     Route: 048

REACTIONS (2)
  - Off label use [Unknown]
  - Hospice care [Unknown]

NARRATIVE: CASE EVENT DATE: 20210722
